FAERS Safety Report 11853467 (Version 1)
Quarter: 2015Q4

REPORT INFORMATION
  Report Type: Spontaneous
  Country: IL (occurrence: IL)
  Receive Date: 20151218
  Receipt Date: 20151218
  Transmission Date: 20160305
  Serious: Yes (Disabling, Other)
  Sender: FDA-Public Use
  Company Number: IL-009507513-1512ISR006627

PATIENT
  Age: 31 Year
  Sex: Male

DRUGS (1)
  1. PROPECIA [Suspect]
     Active Substance: FINASTERIDE
     Indication: ANDROGENETIC ALOPECIA
     Dosage: 1 DF, QD
     Route: 048
     Dates: start: 20080227, end: 20121231

REACTIONS (22)
  - Infertility male [Recovered/Resolved]
  - Sexual dysfunction [Not Recovered/Not Resolved]
  - Drug ineffective [Not Recovered/Not Resolved]
  - Hearing impaired [Unknown]
  - Back pain [Unknown]
  - Mental disorder [Not Recovered/Not Resolved]
  - Oropharyngeal pain [Unknown]
  - Personality disorder [Unknown]
  - Anxiety [Not Recovered/Not Resolved]
  - Liver injury [Recovered/Resolved]
  - Ligament sprain [Unknown]
  - Tympanic membrane perforation [Unknown]
  - Dizziness [Unknown]
  - Exposure via body fluid [Recovered/Resolved]
  - Erectile dysfunction [Not Recovered/Not Resolved]
  - Fall [Unknown]
  - Oligospermia [Recovered/Resolved]
  - Hair injury [Unknown]
  - Partner stress [Unknown]
  - Loss of libido [Not Recovered/Not Resolved]
  - Headache [Unknown]
  - Mood altered [Unknown]

NARRATIVE: CASE EVENT DATE: 201101
